FAERS Safety Report 9012052 (Version 2)
Quarter: 2013Q2

REPORT INFORMATION
  Report Type: Report from Study
  Country: BR (occurrence: BR)
  Receive Date: 20130114
  Receipt Date: 20130611
  Transmission Date: 20140414
  Serious: Yes (Hospitalization, Other)
  Sender: FDA-Public Use
  Company Number: BR-ROCHE-1178584

PATIENT
  Sex: Female
  Weight: 52 kg

DRUGS (6)
  1. ACTEMRA [Suspect]
     Indication: RHEUMATOID ARTHRITIS
     Route: 042
     Dates: start: 20120726
  2. PRELONE [Concomitant]
     Indication: RHEUMATOID ARTHRITIS
  3. DEPURA [Concomitant]
     Indication: RHEUMATOID ARTHRITIS
  4. CELEBRA [Concomitant]
     Indication: RHEUMATOID ARTHRITIS
  5. TRAMADOL HYDROCHLORIDE [Concomitant]
     Indication: PAIN
  6. PURAN T4 [Concomitant]
     Indication: THYROID DISORDER

REACTIONS (7)
  - Breast cancer [Unknown]
  - Emphysema [Unknown]
  - Pain [Unknown]
  - Abdominal distension [Unknown]
  - Thyroid disorder [Unknown]
  - Pain [Not Recovered/Not Resolved]
  - Pruritus [Not Recovered/Not Resolved]
